FAERS Safety Report 12470880 (Version 1)
Quarter: 2016Q2

REPORT INFORMATION
  Report Type: Spontaneous
  Country: US (occurrence: US)
  Receive Date: 20160616
  Receipt Date: 20160616
  Transmission Date: 20160815
  Serious: Yes (Hospitalization)
  Sender: FDA-Public Use
  Company Number: US-HORIZON-RAV-0104-2016

PATIENT
  Age: 5 Year
  Sex: Female
  Weight: 16.3 kg

DRUGS (2)
  1. RAVICTI [Suspect]
     Active Substance: GLYCEROL PHENYLBUTYRATE
     Indication: ARGININOSUCCINATE LYASE DEFICIENCY
     Dosage: 5 ML TID
     Route: 048
     Dates: start: 20160124, end: 20160127
  2. ARGININE [Concomitant]
     Active Substance: ARGININE

REACTIONS (6)
  - Somnolence [Recovering/Resolving]
  - Vomiting [Unknown]
  - Overdose [Recovered/Resolved]
  - Lethargy [Unknown]
  - Metabolic acidosis [Recovering/Resolving]
  - Hyperammonaemia [Recovering/Resolving]

NARRATIVE: CASE EVENT DATE: 20160126
